FAERS Safety Report 11938219 (Version 1)
Quarter: 2016Q1

REPORT INFORMATION
  Report Type: Spontaneous
  Country: US (occurrence: US)
  Receive Date: 20160122
  Receipt Date: 20160122
  Transmission Date: 20160526
  Serious: Yes (Other)
  Sender: FDA-Public Use
  Company Number: US-BAYER-2016-009067

PATIENT
  Age: 67 Year
  Sex: Female
  Weight: 62.59 kg

DRUGS (9)
  1. SPIRIVA [Concomitant]
     Active Substance: TIOTROPIUM BROMIDE MONOHYDRATE
  2. SYMBICORT [Concomitant]
     Active Substance: BUDESONIDE\FORMOTEROL FUMARATE DIHYDRATE
  3. ALBUTEROL. [Concomitant]
     Active Substance: ALBUTEROL
  4. TYLENOL [Concomitant]
     Active Substance: ACETAMINOPHEN
  5. ALPRAZOLAM. [Concomitant]
     Active Substance: ALPRAZOLAM
  6. BISOPROLOL [Concomitant]
     Active Substance: BISOPROLOL
  7. OXYGEN. [Concomitant]
     Active Substance: OXYGEN
  8. VITAMIN D [Concomitant]
     Active Substance: CHOLECALCIFEROL
  9. ALEVE [Suspect]
     Active Substance: NAPROXEN SODIUM
     Indication: ANALGESIC THERAPY
     Dosage: 2 DF, UNK
     Route: 048
     Dates: end: 201508

REACTIONS (8)
  - Swollen tongue [None]
  - Dyspnoea [None]
  - Throat irritation [None]
  - Drug hypersensitivity [None]
  - Anaphylactic reaction [None]
  - Aphasia [None]
  - Rash [None]
  - Gait disturbance [None]

NARRATIVE: CASE EVENT DATE: 201508
